FAERS Safety Report 6537931-2 (Version None)
Quarter: 2010Q1

REPORT INFORMATION
  Report Type: 
  Country: None (occurrence: None)
  Receive Date: 20100111
  Receipt Date: 20091223
  Transmission Date: 20100710
  Serious: Yes (Other)
  Sender: FDA-Public Use
  Company Number: 2009003898

PATIENT
  Age: 52 Year
  Sex: Female

DRUGS (1)
  1. TARCEVA [Suspect]
     Indication: DRUG USE FOR UNKNOWN INDICATION
     Dosage: (150 MG,QD),ORAL
     Route: 048
     Dates: start: 20060718

REACTIONS (3)
  - FALL [None]
  - HUMERUS FRACTURE [None]
  - HYDROPNEUMOTHORAX [None]
